FAERS Safety Report 7780005-3 (Version None)
Quarter: 2011Q3

REPORT INFORMATION
  Report Type: 
  Country: None (occurrence: None)
  Receive Date: 20110927
  Receipt Date: 20110914
  Transmission Date: 20111222
  Serious: No
  Sender: FDA-Public Use
  Company Number: US-JNJFOC-20110807608

PATIENT
  Age: 33 Year
  Sex: Female

DRUGS (4)
  1. INVEGA SUSTENNA [Suspect]
     Indication: PRODUCT USED FOR UNKNOWN INDICATION
     Route: 030
     Dates: start: 20110816
  2. INVEGA SUSTENNA [Suspect]
     Route: 030
     Dates: start: 20110627
  3. INVEGA SUSTENNA [Suspect]
     Route: 030
     Dates: start: 20110401
  4. INVEGA SUSTENNA [Suspect]
     Route: 030
     Dates: start: 20110718

REACTIONS (2)
  - URTICARIA [None]
  - INJECTION SITE MASS [None]
